FAERS Safety Report 10409544 (Version 1)
Quarter: 2014Q3

REPORT INFORMATION
  Report Type: Spontaneous
  Country: US (occurrence: None)
  Receive Date: 20140825
  Receipt Date: 20140825
  Transmission Date: 20150326
  Serious: Yes (Disabling)
  Sender: FDA-Public Use
  Company Number: None

PATIENT
  Age: 50 Year
  Sex: Female
  Weight: 52.16 kg

DRUGS (1)
  1. TRAMADOL HYDROCHLORIDE. [Suspect]
     Active Substance: TRAMADOL HYDROCHLORIDE
     Indication: ARTHRALGIA
     Dosage: 1 TWICE DAILY TAKEN BY MOUTH
     Route: 048
     Dates: start: 20140812, end: 20140812

REACTIONS (5)
  - Asthenia [None]
  - Dizziness [None]
  - Vomiting [None]
  - Dysstasia [None]
  - Nausea [None]

NARRATIVE: CASE EVENT DATE: 20140812
